FAERS Safety Report 7734269-2 (Version None)
Quarter: 2011Q3

REPORT INFORMATION
  Report Type: 
  Country: None (occurrence: None)
  Receive Date: 20110901
  Receipt Date: 20110817
  Transmission Date: 20111222
  Serious: Yes (Other)
  Sender: FDA-Public Use
  Company Number: US-1187237

PATIENT
  Age: 76 Year
  Sex: Male
  Weight: 149.6 kg

DRUGS (15)
  1. PHENYLEPHRINE HYDROCHLORIDE [Concomitant]
  2. ENALAPRIL MALEATE [Concomitant]
  3. SIMVASTATIN [Concomitant]
  4. BSS [Suspect]
     Indication: CATARACT OPERATION
     Dosage: (500 ML INTRAOCULAR)
     Route: 031
     Dates: start: 20110713, end: 20110713
  5. EPINEPHRINE [Concomitant]
  6. SODIUM CHLORIDE [Concomitant]
  7. CYCLOPENTOLATE HCL [Concomitant]
  8. MOXIFLOXACIN HYDROCHLORIDE [Concomitant]
  9. ACETAZOLAMIDE [Concomitant]
  10. FLURBIPROFEN SODIUM [Concomitant]
  11. NIFEDIPINE [Concomitant]
  12. VARICELLA ZOSTER VACCINE [Concomitant]
  13. MULTIVITAMIN [Concomitant]
  14. CIPROFLOXACIN HYDROCHLORIDE [Concomitant]
  15. PREDNISOLONE ACETATE [Concomitant]

REACTIONS (1)
  - TOXIC ANTERIOR SEGMENT SYNDROME [None]
